FAERS Safety Report 5808415-1 (Version None)
Quarter: 2008Q3

REPORT INFORMATION
  Report Type: 
  Country: None (occurrence: None)
  Receive Date: 20080714
  Receipt Date: 20080707
  Transmission Date: 20090109
  Serious: Yes (Death)
  Sender: FDA-Public Use
  Company Number: PHHY2008GB13180

PATIENT
  Age: 42 Year
  Sex: Female

DRUGS (3)
  1. CLOZAPINE [Suspect]
     Dosage: UNK
     Route: 048
     Dates: start: 19980408, end: 20050524
  2. ZAPONEX [Suspect]
     Dosage: UNK
     Route: 048
     Dates: start: 20050525
  3. AMISULPRIDE [Concomitant]

REACTIONS (1)
  - MULTIPLE MYELOMA [None]
